FAERS Safety Report 25774259 (Version 1)
Quarter: 2025Q3

REPORT INFORMATION
  Report Type: Spontaneous
  Country: US (occurrence: US)
  Receive Date: 20250908
  Receipt Date: 20250908
  Transmission Date: 20251020
  Serious: No
  Sender: VERTEX
  Company Number: US-VERTEX PHARMACEUTICALS-2025-014341

PATIENT
  Sex: Female

DRUGS (2)
  1. JOURNAVX [Suspect]
     Active Substance: SUZETRIGINE
     Indication: Pain
     Dosage: TOOK 1 - 50 MG TABLET, QD
     Route: 048
     Dates: start: 20250826, end: 20250826
  2. JOURNAVX [Suspect]
     Active Substance: SUZETRIGINE
     Dosage: TOOK 1 - 50 MG TABLET, BID
     Route: 048
     Dates: start: 20250828

REACTIONS (3)
  - Arthralgia [Not Recovered/Not Resolved]
  - Joint stiffness [Not Recovered/Not Resolved]
  - Product prescribing error [Unknown]

NARRATIVE: CASE EVENT DATE: 20250801
